FAERS Safety Report 24143723 (Version 1)
Quarter: 2024Q3

REPORT INFORMATION
  Report Type: Spontaneous
  Country: DE (occurrence: DE)
  Receive Date: 20240727
  Receipt Date: 20240727
  Transmission Date: 20241017
  Serious: Yes (Other)
  Sender: TEVA
  Company Number: DE-TEVA-VS-3223621

PATIENT
  Age: 83 Year
  Sex: Female

DRUGS (2)
  1. DIAZEPAM [Suspect]
     Active Substance: DIAZEPAM
     Indication: Epilepsy
     Dosage: RATIOPHARM 2 MG TABLETTEN, 2 TABLETS IN THE EVENING
     Route: 048
  2. CARBAMAZEPINE [Concomitant]
     Active Substance: CARBAMAZEPINE

REACTIONS (3)
  - Cerebellar atrophy [Unknown]
  - Polyneuropathy [Unknown]
  - Dizziness [Unknown]

NARRATIVE: CASE EVENT DATE: 20240101
